FAERS Safety Report 20114784 (Version 2)
Quarter: 2021Q4

REPORT INFORMATION
  Report Type: Spontaneous
  Country: US (occurrence: US)
  Receive Date: 20211125
  Receipt Date: 20211207
  Transmission Date: 20220303
  Serious: No
  Sender: FDA-Public Use
  Company Number: US-SANOFI-00862449

PATIENT
  Age: 66 Year
  Sex: Female

DRUGS (1)
  1. LANTUS SOLOSTAR [Suspect]
     Active Substance: INSULIN GLARGINE
     Indication: Diabetes mellitus
     Dosage: 40 IU, QD
     Route: 065

REACTIONS (4)
  - Anxiety [Unknown]
  - Blood glucose increased [Unknown]
  - Device leakage [Unknown]
  - Visual impairment [Unknown]

NARRATIVE: CASE EVENT DATE: 20211101
